FAERS Safety Report 6358594-5 (Version None)
Quarter: 2009Q3

REPORT INFORMATION
  Report Type: 
  Country: None (occurrence: None)
  Receive Date: 20090916
  Receipt Date: 20090907
  Transmission Date: 20100115
  Serious: Yes (Other)
  Sender: FDA-Public Use
  Company Number: CN-MERCK-0909CHN00019

PATIENT
  Sex: Female

DRUGS (2)
  1. CANCIDAS [Suspect]
     Indication: FUNGAL INFECTION
     Route: 042
     Dates: start: 20090905, end: 20090905
  2. PRIMAXIN [Suspect]
     Route: 065

REACTIONS (2)
  - ASPHYXIA [None]
  - LARYNGEAL OEDEMA [None]
